FAERS Safety Report 5023154-5 (Version None)
Quarter: 2006Q2

REPORT INFORMATION
  Report Type: 
  Country: None (occurrence: None)
  Receive Date: 20060428
  Receipt Date: 20060216
  Transmission Date: 20061013
  Serious: No
  Sender: FDA-Public Use
  Company Number: 012134

PATIENT
  Age: 43 Year
  Sex: Female

DRUGS (2)
  1. PRIALT [Suspect]
     Indication: SYRINGOMYELIA
     Dosage: SEE IMAGE
     Route: 037
     Dates: start: 20051228
  2. PRIALT [Suspect]
     Indication: SYRINGOMYELIA
     Dosage: SEE IMAGE
     Route: 037
     Dates: start: 20060101

REACTIONS (3)
  - BONE PAIN [None]
  - CHEST PAIN [None]
  - NECK PAIN [None]
